FAERS Safety Report 8484044-9 (Version None)
Quarter: 2012Q2

REPORT INFORMATION
  Report Type: 
  Country: None (occurrence: None)
  Receive Date: 20120627
  Receipt Date: 20120627
  Transmission Date: 20120825
  Serious: Yes (Hospitalization, Other)
  Sender: FDA-Public Use
  Company Number: None

PATIENT
  Age: 40 Year
  Sex: Female
  Weight: 57.1532 kg

DRUGS (1)
  1. MIRENA [Suspect]
     Indication: CONTRACEPTION
     Dates: start: 20090216, end: 20120625

REACTIONS (5)
  - MEDICAL DEVICE DISCOMFORT [None]
  - GASTROINTESTINAL TRACT IRRITATION [None]
  - DEVICE DISLOCATION [None]
  - MENORRHAGIA [None]
  - UTERINE SPASM [None]
